FAERS Safety Report 7069639-1 (Version None)
Quarter: 2010Q4

REPORT INFORMATION
  Report Type: 
  Country: None (occurrence: None)
  Receive Date: 20101028
  Receipt Date: 20100428
  Transmission Date: 20110411
  Serious: No
  Sender: FDA-Public Use
  Company Number: US-WYE-H14443410

PATIENT
  Sex: Female
  Weight: 47.67 kg

DRUGS (8)
  1. EFFEXOR XR [Interacting]
     Indication: MAJOR DEPRESSION
     Dates: start: 20091201
  2. EFFEXOR XR [Interacting]
     Indication: ANXIETY
  3. EFFEXOR XR [Interacting]
  4. EFFEXOR XR [Interacting]
     Dates: start: 20100101
  5. ACETAMINOPHEN [Concomitant]
  6. IBUPROFEN [Suspect]
     Indication: PAIN
     Dosage: ^UP TO 800 MG DAILY^
  7. TRAZODONE [Concomitant]
  8. YAZ [Concomitant]

REACTIONS (9)
  - CONDITION AGGRAVATED [None]
  - CONTUSION [None]
  - DEPRESSION [None]
  - DIZZINESS [None]
  - DRUG INEFFECTIVE [None]
  - DRUG INTERACTION [None]
  - ENDOMETRIOSIS [None]
  - NAUSEA [None]
  - NIGHT SWEATS [None]
